FAERS Safety Report 22164363 (Version 1)
Quarter: 2023Q2

REPORT INFORMATION
  Report Type: Spontaneous
  Country: US (occurrence: US)
  Receive Date: 20230403
  Receipt Date: 20230403
  Transmission Date: 20230721
  Serious: Yes (Hospitalization, Other)
  Sender: FDA-Public Use
  Company Number: US-ABBVIE-4713173

PATIENT
  Age: 76 Year
  Sex: Female

DRUGS (3)
  1. SYNTHROID [Suspect]
     Active Substance: LEVOTHYROXINE SODIUM
     Indication: Product used for unknown indication
     Dosage: 100 MICROGRAM
     Route: 048
     Dates: end: 20230201
  2. LOPERAMIDE [Concomitant]
     Active Substance: LOPERAMIDE
     Indication: Product used for unknown indication
  3. CALCIUM [Concomitant]
     Active Substance: CALCIUM
     Indication: Mineral supplementation

REACTIONS (5)
  - Hypotension [Unknown]
  - Tri-iodothyronine increased [Recovering/Resolving]
  - Atrial fibrillation [Recovered/Resolved]
  - Ankle fracture [Unknown]
  - Thyroxine increased [Recovering/Resolving]

NARRATIVE: CASE EVENT DATE: 20221201
